FAERS Safety Report 8014284-4 (Version None)
Quarter: 2011Q4

REPORT INFORMATION
  Report Type: 
  Country: None (occurrence: None)
  Receive Date: 20111229
  Receipt Date: 20111227
  Transmission Date: 20120403
  Serious: Yes (Life-Threatening)
  Sender: FDA-Public Use
  Company Number: FR-GLAXOSMITHKLINE-B0771610A

PATIENT
  Sex: Female

DRUGS (3)
  1. PAROXETINE HCL [Suspect]
     Indication: PRODUCT USED FOR UNKNOWN INDICATION
     Route: 048
     Dates: end: 20040217
  2. XANAX [Suspect]
     Indication: PRODUCT USED FOR UNKNOWN INDICATION
     Route: 048
     Dates: end: 20040217
  3. IMOVANE [Suspect]
     Indication: PRODUCT USED FOR UNKNOWN INDICATION
     Route: 048
     Dates: end: 20040217

REACTIONS (1)
  - HEPATITIS FULMINANT [None]
